FAERS Safety Report 10742308 (Version 1)
Quarter: 2015Q1

REPORT INFORMATION
  Report Type: Spontaneous
  Country: US (occurrence: US)
  Receive Date: 20150127
  Receipt Date: 20150127
  Transmission Date: 20150721
  Serious: Yes (Hospitalization)
  Sender: FDA-Public Use
  Company Number: US-ELI_LILLY_AND_COMPANY-US201501007131

PATIENT
  Sex: Male

DRUGS (1)
  1. CYRAMZA [Suspect]
     Active Substance: RAMUCIRUMAB
     Indication: OESOPHAGEAL ADENOCARCINOMA

REACTIONS (4)
  - Pulmonary embolism [Unknown]
  - Gastrointestinal haemorrhage [Unknown]
  - Gastrointestinal perforation [Unknown]
  - Deep vein thrombosis [Unknown]
